FAERS Safety Report 13551650 (Version 1)
Quarter: 2017Q2

REPORT INFORMATION
  Report Type: Spontaneous
  Country: DE (occurrence: DE)
  Receive Date: 20170516
  Receipt Date: 20170516
  Transmission Date: 20170830
  Serious: Yes (Other)
  Sender: FDA-Public Use
  Company Number: DE-TEVA-766825GER

PATIENT
  Sex: Male

DRUGS (1)
  1. GABAPENTIN-TEVA 300 MG HARTKAPSELN [Suspect]
     Active Substance: GABAPENTIN
     Route: 048

REACTIONS (1)
  - Cerebrovascular accident [Unknown]
